FAERS Safety Report 6382192-0 (Version None)
Quarter: 2009Q3

REPORT INFORMATION
  Report Type: 
  Country: None (occurrence: None)
  Receive Date: 20090930
  Receipt Date: 20090916
  Transmission Date: 20100115
  Serious: Yes (Other)
  Sender: FDA-Public Use
  Company Number: DE-PFIZER INC-2009250377

PATIENT
  Age: 70 Year

DRUGS (16)
  1. VFEND [Suspect]
     Indication: OSTEOMYELITIS FUNGAL
     Dosage: 600 MG, 1X/DAY
     Route: 042
     Dates: start: 20090428, end: 20090428
  2. VFEND [Suspect]
     Indication: SINUSITIS ASPERGILLUS
     Dosage: 400 MG, 2X/DAY
     Route: 042
     Dates: start: 20090429, end: 20090621
  3. VFEND [Suspect]
     Indication: CEREBRAL ASPERGILLOSIS
     Dosage: 300 MG, 3X/DAY
     Route: 042
     Dates: start: 20090728, end: 20090805
  4. VFEND [Suspect]
     Dosage: 400 MG, 2X/DAY
     Dates: start: 20090806, end: 20090819
  5. VFEND [Suspect]
     Dosage: 300 MG, 2X/DAY
     Route: 048
     Dates: start: 20090622, end: 20090727
  6. VFEND [Suspect]
     Dosage: 300 MG, 2X/DAY
     Route: 048
     Dates: start: 20090820
  7. VFEND [Suspect]
  8. ZIENAM [Concomitant]
     Dosage: 1 G, 3X/DAY
     Route: 042
  9. IMBUN [Concomitant]
     Indication: PAIN
     Dosage: 600 MG, 4X/DAY
     Route: 048
     Dates: start: 20090428, end: 20090727
  10. LYRICA [Concomitant]
     Indication: PAIN
     Dosage: 300 MG, 1X/DAY
     Route: 048
     Dates: start: 20090428, end: 20090727
  11. PANTOPRAZOLE SODIUM [Concomitant]
     Dosage: 40 MG, 1X/DAY
     Route: 048
     Dates: start: 20090428, end: 20090727
  12. FRAGMIN [Concomitant]
     Dosage: UNK
     Route: 058
     Dates: start: 20090428, end: 20090727
  13. TRAMADOL HYDROCHLORIDE [Concomitant]
     Dosage: 30 GTT, AS NEEDED
     Route: 048
  14. NOVALGIN [Concomitant]
     Dosage: 40 GTT, AS NEEDED
     Route: 048
  15. NULYTELY [Concomitant]
     Dosage: UNK
     Route: 048
  16. PULSATILLA [Concomitant]
     Dosage: UNK
     Route: 048
     Dates: start: 20090714, end: 20090721

REACTIONS (2)
  - DRUG INEFFECTIVE [None]
  - DRUG LEVEL BELOW THERAPEUTIC [None]
